FAERS Safety Report 5045047-X (Version None)
Quarter: 2006Q3

REPORT INFORMATION
  Report Type: 
  Country: None (occurrence: None)
  Receive Date: 20060707
  Receipt Date: 20060627
  Transmission Date: 20061208
  Serious: Yes (Other)
  Sender: FDA-Public Use
  Company Number: ES-JNJFOC-20060501708

PATIENT
  Age: 65 Year
  Sex: Female

DRUGS (2)
  1. DOXORUBICIN HCL [Suspect]
     Indication: BREAST CANCER
     Route: 042
  2. ANTIEMETIC [Concomitant]
     Dosage: PREMEDICATION

REACTIONS (3)
  - BLOOD PRESSURE INCREASED [None]
  - CYANOSIS [None]
  - INFUSION RELATED REACTION [None]
